FAERS Safety Report 8529582-5 (Version None)
Quarter: 2012Q3

REPORT INFORMATION
  Report Type: 
  Country: None (occurrence: None)
  Receive Date: 20120723
  Receipt Date: 20120629
  Transmission Date: 20120928
  Serious: Yes (Hospitalization, Other)
  Sender: FDA-Public Use
  Company Number: CA-SANOFI-AVENTIS-200618968GDDC

PATIENT
  Age: 69 Year
  Sex: Male

DRUGS (8)
  1. ACETYLSALICYLIC ACID SRT [Concomitant]
     Dates: start: 20020801
  2. OPTIPEN [Suspect]
     Indication: DIABETES MELLITUS
  3. SIMVASTATIN [Concomitant]
     Dates: start: 20020801
  4. PANTOPRAZOLE [Concomitant]
     Indication: DYSPEPSIA
  5. LANTUS [Suspect]
     Indication: DIABETES MELLITUS
     Route: 058
     Dates: start: 20021204
  6. ZOPLICONE [Concomitant]
     Indication: INSOMNIA
  7. PLACEBO [Suspect]
     Dates: start: 20021204
  8. NIFEDIPINE [Concomitant]
     Indication: HYPERTENSION
     Dates: start: 20010101

REACTIONS (1)
  - VENTRICULAR EXTRASYSTOLES [None]
